FAERS Safety Report 15864071 (Version 7)
Quarter: 2019Q2

REPORT INFORMATION
  Report Type: Report from Study
  Country: CA (occurrence: CA)
  Receive Date: 20190124
  Receipt Date: 20190627
  Transmission Date: 20190711
  Serious: Yes (Hospitalization, Other)
  Sender: FDA-Public Use
  Company Number: CA-JNJFOC-20190125699

PATIENT
  Age: 16 Year
  Sex: Female
  Weight: 45.5 kg

DRUGS (3)
  1. REMICADE [Suspect]
     Active Substance: INFLIXIMAB
     Indication: CROHN^S DISEASE
     Route: 042
     Dates: start: 20020425
  2. REMICADE [Suspect]
     Active Substance: INFLIXIMAB
     Route: 042
     Dates: start: 20181220
  3. REMICADE [Suspect]
     Active Substance: INFLIXIMAB
     Indication: ANKYLOSING SPONDYLITIS
     Dosage: STRENGTH = 100 MG
     Route: 042

REACTIONS (6)
  - Cough [Unknown]
  - Off label use [Unknown]
  - Drug ineffective [Unknown]
  - Haemoglobin decreased [Unknown]
  - Product use issue [Unknown]
  - Crohn^s disease [Not Recovered/Not Resolved]

NARRATIVE: CASE EVENT DATE: 20181220
